FAERS Safety Report 24661830 (Version 2)
Quarter: 2025Q1

REPORT INFORMATION
  Report Type: Spontaneous
  Country: US (occurrence: US)
  Receive Date: 20241125
  Receipt Date: 20250129
  Transmission Date: 20250409
  Serious: No
  Sender: SANOFI AVENTIS
  Company Number: US-SA-2024SA341149

PATIENT
  Age: 45 Year
  Sex: Female

DRUGS (1)
  1. DUPIXENT [Suspect]
     Active Substance: DUPILUMAB
     Indication: Eosinophilic oesophagitis
     Dosage: 300 MG, QW
     Route: 058
     Dates: start: 20240930

REACTIONS (3)
  - Pharyngeal swelling [Recovering/Resolving]
  - Dizziness [Recovered/Resolved]
  - Dry eye [Not Recovered/Not Resolved]

NARRATIVE: CASE EVENT DATE: 20241101
